FAERS Safety Report 9688737 (Version 1)
Quarter: 2013Q4

REPORT INFORMATION
  Report Type: Spontaneous
  Country: US (occurrence: None)
  Receive Date: 20131113
  Receipt Date: 20131113
  Transmission Date: 20140711
  Serious: Yes (Life-Threatening, Hospitalization)
  Sender: FDA-Public Use
  Company Number: ORE201310-000029

PATIENT
  Age: 51 Year
  Sex: Female

DRUGS (5)
  1. NALOXONE [Suspect]
  2. HYDROXYCHLOROQUINE [Suspect]
  3. OXYCODONE/PARACETAMOL [Suspect]
     Dosage: 5/325 MG (35 DOSAGE FORMS)
  4. EPINEPHRINE [Suspect]
  5. DIAZEPAM (DIAZEPAM) [Suspect]

REACTIONS (4)
  - Ventricular fibrillation [None]
  - Somnolence [None]
  - Hypotension [None]
  - Overdose [None]
